FAERS Safety Report 23452311 (Version 1)
Quarter: 2024Q1

REPORT INFORMATION
  Report Type: Spontaneous
  Country: US (occurrence: None)
  Receive Date: 20240127
  Receipt Date: 20240127
  Transmission Date: 20240409
  Serious: Yes (Hospitalization, Disabling)
  Sender: FDA-Public Use
  Company Number: None

PATIENT
  Age: 55 Year
  Sex: Female

DRUGS (15)
  1. HUMIRA [Suspect]
     Active Substance: ADALIMUMAB
     Indication: Rheumatoid arthritis
     Dosage: OTHER QUANTITY : 1 INJECTION(S);?OTHER FREQUENCY : EVERY 14 DAYS;?
     Route: 058
     Dates: start: 20220217, end: 20240103
  2. HYDROCHLOROTHIAZIDE [Concomitant]
  3. LOSARTAN [Concomitant]
  4. METHOTREXATE [Concomitant]
     Active Substance: METHOTREXATE
  5. HUMIRA [Concomitant]
  6. IBUPROFEN [Concomitant]
  7. OXYCODONE [Concomitant]
  8. ESOMEPRAZOLE MAGNESIUM [Concomitant]
     Active Substance: ESOMEPRAZOLE\ESOMEPRAZOLE MAGNESIUM\ESOMEPRAZOLE MAGNESIUM DIHYDRATE
  9. PREDNISONE [Concomitant]
     Active Substance: PREDNISONE
  10. multivitamin for women 50+ [Concomitant]
  11. Vitamin D [Concomitant]
  12. Vitamin C [Concomitant]
  13. FOLIC ACID [Concomitant]
     Active Substance: FOLIC ACID
  14. BIOTIN [Concomitant]
  15. L-Lysine [Concomitant]

REACTIONS (3)
  - Gait inability [None]
  - Muscular weakness [None]
  - Therapy cessation [None]

NARRATIVE: CASE EVENT DATE: 20240105
